FAERS Safety Report 4703798-8 (Version None)
Quarter: 2005Q2

REPORT INFORMATION
  Report Type: 
  Country: None (occurrence: None)
  Receive Date: 20050630
  Receipt Date: 20050615
  Transmission Date: 20051028
  Serious: Yes (Other)
  Sender: FDA-Public Use
  Company Number: JP-JNJFOC-20050605912

PATIENT
  Age: 59 Year
  Sex: Male

DRUGS (5)
  1. ITRACONAZOLE [Suspect]
     Indication: ONYCHOMYCOSIS
     Route: 049
  2. GLYBURIDE [Concomitant]
     Route: 049
  3. VOGLIBOSE [Concomitant]
     Route: 049
  4. RANITIDINE HYDROCHLORIDE [Concomitant]
     Route: 049
  5. LOSARTAN POTASSIUM [Concomitant]
     Route: 049

REACTIONS (2)
  - JOINT RANGE OF MOTION DECREASED [None]
  - RADIAL NERVE PALSY [None]
